FAERS Safety Report 10417619 (Version 1)
Quarter: 2014Q2

REPORT INFORMATION
  Report Type: Spontaneous
  Country: US (occurrence: None)
  Receive Date: 20140609
  Receipt Date: 20140609
  Transmission Date: 20141212
  Serious: No
  Sender: FDA-Public Use
  Company Number: 2014TUS000647

PATIENT
  Sex: Male

DRUGS (5)
  1. BRINTELLIX [Suspect]
     Dosage: UNK, SEVERAL DAYS
  2. EFFEXOR [Concomitant]
  3. NORTRIPTYLINE [Concomitant]
  4. ATIVAN [Concomitant]
  5. NUVIGIL (ARMODAFINIL) [Concomitant]

REACTIONS (2)
  - Agitation [None]
  - Insomnia [None]
